FAERS Safety Report 4433146-2 (Version None)
Quarter: 2004Q3

REPORT INFORMATION
  Report Type: 
  Country: None (occurrence: None)
  Receive Date: 20040823
  Receipt Date: 20040809
  Transmission Date: 20050211
  Serious: Yes (Hospitalization)
  Sender: FDA-Public Use
  Company Number: 201714

PATIENT
  Age: 49 Year
  Sex: Female

DRUGS (7)
  1. AVONEX [Suspect]
     Indication: MULTIPLE SCLEROSIS
     Dosage: 30 MCG QW IM
     Route: 030
     Dates: start: 20020228, end: 20031101
  2. AVONEX [Suspect]
     Indication: MULTIPLE SCLEROSIS
     Dosage: 30 MCG QW IM
     Route: 030
     Dates: start: 20031101, end: 20040709
  3. METFORMIN HCL [Concomitant]
  4. GLIPIZIDE [Concomitant]
  5. NEURONTIN [Concomitant]
  6. VALERIAN [Concomitant]
  7. ASPIRIN [Concomitant]

REACTIONS (3)
  - ANAEMIA [None]
  - COLON CANCER STAGE IV [None]
  - METASTASES TO LIVER [None]
